FAERS Safety Report 5474872-6 (Version None)
Quarter: 2007Q4

REPORT INFORMATION
  Report Type: 
  Country: None (occurrence: None)
  Receive Date: 20071002
  Receipt Date: 20070924
  Transmission Date: 20080405
  Serious: Yes (Other)
  Sender: FDA-Public Use
  Company Number: BR-ROCHE-521654

PATIENT
  Age: 40 Year
  Sex: Female
  Weight: 48 kg

DRUGS (5)
  1. ISOTRETINOIN [Suspect]
     Indication: ACNE
     Route: 048
     Dates: start: 20060101
  2. ISOTRETINOIN [Suspect]
     Route: 048
     Dates: start: 20060101, end: 20060101
  3. RIVOTRIL [Suspect]
     Indication: DRUG USE FOR UNKNOWN INDICATION
     Route: 048
     Dates: start: 20060301
  4. LEXAPRO [Concomitant]
     Dates: start: 20060901
  5. CONTRACEPTIVE DRUG NOS [Concomitant]

REACTIONS (2)
  - NO ADVERSE REACTION [None]
  - PREGNANCY [None]
